FAERS Safety Report 17242234 (Version 1)
Quarter: 2020Q1

REPORT INFORMATION
  Report Type: Spontaneous
  Country: US (occurrence: US)
  Receive Date: 20200107
  Receipt Date: 20200107
  Transmission Date: 20200409
  Serious: No
  Sender: FDA-Public Use
  Company Number: US-009507513-1912USA005249

PATIENT
  Age: 65 Year
  Sex: Male
  Weight: 113.5 kg

DRUGS (1)
  1. INVANZ [Suspect]
     Active Substance: ERTAPENEM SODIUM
     Indication: IMMUNE TOLERANCE INDUCTION
     Dosage: UNK

REACTIONS (1)
  - Off label use [Unknown]
